FAERS Safety Report 6438170-6 (Version None)
Quarter: 2009Q4

REPORT INFORMATION
  Report Type: 
  Country: None (occurrence: None)
  Receive Date: 20091112
  Receipt Date: 20091106
  Transmission Date: 20100525
  Serious: Yes (Hospitalization)
  Sender: FDA-Public Use
  Company Number: US-GENENTECH-290050

PATIENT
  Sex: Male

DRUGS (43)
  1. RITUXIMAB [Suspect]
     Indication: NON-HODGKIN'S LYMPHOMA
     Dosage: 705 MG, UNK
     Route: 042
     Dates: start: 20090225
  2. RITUXIMAB [Suspect]
     Dosage: 709 MG, UNK
     Route: 042
     Dates: start: 20090320
  3. RITUXIMAB [Suspect]
     Dosage: 701 MG, UNK
     Route: 042
     Dates: start: 20090422
  4. RITUXIMAB [Suspect]
     Dosage: 709 MG, UNK
     Route: 042
     Dates: start: 20090513
  5. RITUXIMAB [Suspect]
     Dosage: 765 MG, UNK
     Route: 042
     Dates: start: 20090619
  6. RITUXIMAB [Suspect]
     Dosage: 705 MG, UNK
     Route: 042
     Dates: start: 20090817
  7. METHOTREXATE [Suspect]
     Indication: NON-HODGKIN'S LYMPHOMA
     Dosage: 284 MG, Q21D
     Route: 042
     Dates: start: 20090514
  8. METHOTREXATE [Suspect]
     Dosage: 1134 MG, UNK
     Route: 042
     Dates: start: 20090514
  9. CYCLOPHOSPHAMIDE [Concomitant]
     Indication: NON-HODGKIN'S LYMPHOMA
     Dosage: 567 MG, UNK
     Route: 040
     Dates: start: 20090225
  10. CYCLOPHOSPHAMIDE [Concomitant]
     Dosage: UNK
     Dates: start: 20090321
  11. CYCLOPHOSPHAMIDE [Concomitant]
     Dosage: 449 MG, UNK
     Route: 042
     Dates: start: 20090423
  12. CYCLOPHOSPHAMIDE [Concomitant]
     Dosage: 306 MG, UNK
     Route: 042
     Dates: start: 20090620
  13. MESNA [Concomitant]
     Indication: NON-HODGKIN'S LYMPHOMA
     Dosage: 1134 MG, UNK
     Dates: start: 20090225
  14. MESNA [Concomitant]
     Dosage: 1146 MG, UNK
     Route: 042
     Dates: start: 20090321
  15. MESNA [Concomitant]
     Dosage: 1122 MG, UNK
     Route: 042
     Dates: start: 20090423
  16. DOXORUBICIN HCL [Concomitant]
     Indication: NON-HODGKIN'S LYMPHOMA
     Dosage: 47 MG, UNK
     Route: 042
     Dates: start: 20090225
  17. DOXORUBICIN HCL [Concomitant]
     Dosage: 37 MG, UNK
     Route: 042
     Dates: start: 20090422
  18. DOXORUBICIN HCL [Concomitant]
     Dosage: 25.5 MG, UNK
     Route: 042
     Dates: start: 20090619
  19. VINCRISTINE [Concomitant]
     Indication: NON-HODGKIN'S LYMPHOMA
     Dosage: 2 MG, UNK
     Route: 042
     Dates: start: 20090220
  20. VINCRISTINE [Concomitant]
     Dosage: 2 MG, UNK
     Route: 042
     Dates: start: 20090324
  21. VINCRISTINE [Concomitant]
     Dosage: 2 MG, UNK
     Route: 042
     Dates: start: 20090331
  22. VINCRISTINE [Concomitant]
     Dosage: 1 MG, UNK
     Route: 042
     Dates: start: 20090426
  23. VINCRISTINE [Concomitant]
     Dosage: 1 MG, UNK
     Route: 042
     Dates: start: 20090506
  24. DEXAMETHASONE [Concomitant]
     Indication: NON-HODGKIN'S LYMPHOMA
     Dosage: 40 MG, UNK
     Route: 048
     Dates: start: 20090225
  25. DEXAMETHASONE [Concomitant]
     Dosage: 40 G, UNK
     Route: 048
     Dates: start: 20090320
  26. DEXAMETHASONE [Concomitant]
     Dosage: 40 MG, UNK
     Route: 048
     Dates: start: 20090422
  27. DEXAMETHASONE [Concomitant]
     Dosage: 40 MG, UNK
     Route: 048
     Dates: start: 20090619
  28. CYTARABINE [Concomitant]
     Indication: NON-HODGKIN'S LYMPHOMA
     Dosage: 3.78 MG, UNK
     Route: 042
     Dates: start: 20090513
  29. ADVAIR DISKUS 100/50 [Concomitant]
     Indication: DRUG USE FOR UNKNOWN INDICATION
  30. AMIODARONE [Concomitant]
     Indication: DRUG USE FOR UNKNOWN INDICATION
  31. ASPIRIN [Concomitant]
     Indication: DRUG USE FOR UNKNOWN INDICATION
  32. COREG [Concomitant]
     Indication: DRUG USE FOR UNKNOWN INDICATION
  33. CLONAZEPAM [Concomitant]
     Indication: DRUG USE FOR UNKNOWN INDICATION
  34. FENTANYL-100 [Concomitant]
     Indication: DRUG USE FOR UNKNOWN INDICATION
  35. FIORICET [Concomitant]
     Indication: DRUG USE FOR UNKNOWN INDICATION
  36. ARIXTRA [Concomitant]
     Indication: DRUG USE FOR UNKNOWN INDICATION
  37. GABAPENTIN [Concomitant]
     Indication: DRUG USE FOR UNKNOWN INDICATION
  38. DILAUDID [Concomitant]
     Indication: DRUG USE FOR UNKNOWN INDICATION
  39. LACTULOSE [Concomitant]
     Indication: DRUG USE FOR UNKNOWN INDICATION
  40. REME-T [Concomitant]
     Indication: DRUG USE FOR UNKNOWN INDICATION
  41. RHNGF [Concomitant]
     Indication: DRUG USE FOR UNKNOWN INDICATION
  42. PRAVASTATIN [Concomitant]
     Indication: DRUG USE FOR UNKNOWN INDICATION
  43. SENOKOT [Concomitant]
     Indication: DRUG USE FOR UNKNOWN INDICATION

REACTIONS (3)
  - ANAEMIA [None]
  - DISEASE PROGRESSION [None]
  - RESPIRATORY FAILURE [None]
